FAERS Safety Report 17670652 (Version 1)
Quarter: 2020Q2

REPORT INFORMATION
  Report Type: Spontaneous
  Country: US (occurrence: US)
  Receive Date: 20200414
  Receipt Date: 20200414
  Transmission Date: 20200713
  Serious: Yes (Life-Threatening)
  Sender: FDA-Public Use
  Company Number: None

PATIENT
  Age: 41 Year
  Sex: Male

DRUGS (2)
  1. METRONIDAZOLE (METRONIDAZOLE HCL 500MG/VIL INJ) [Suspect]
     Active Substance: METRONIDAZOLE HYDROCHLORIDE
     Indication: PROPHYLAXIS
     Dosage: ?          OTHER FREQUENCY:ONCE;OTHER ROUTE:IV?
     Dates: start: 20190429, end: 20190429
  2. METRONIDAZOLE (METRONIDAZOLE HCL 500MG/VIL INJ) [Suspect]
     Active Substance: METRONIDAZOLE HYDROCHLORIDE
     Indication: COLON OPERATION
     Dosage: ?          OTHER FREQUENCY:ONCE;OTHER ROUTE:IV?
     Dates: start: 20190429, end: 20190429

REACTIONS (3)
  - Tachycardia [None]
  - Anaphylactic reaction [None]
  - Hypotension [None]

NARRATIVE: CASE EVENT DATE: 20190429
